FAERS Safety Report 20684504 (Version 1)
Quarter: 2022Q2

REPORT INFORMATION
  Report Type: Spontaneous
  Country: CN (occurrence: CN)
  Receive Date: 20220407
  Receipt Date: 20220407
  Transmission Date: 20220720
  Serious: Yes (Other)
  Sender: FDA-Public Use
  Company Number: CN-PFIZER INC-202200529515

PATIENT
  Age: 80 Year
  Sex: Male

DRUGS (9)
  1. CEFOPERAZONE SODIUM\SULBACTAM SODIUM [Suspect]
     Active Substance: CEFOPERAZONE SODIUM\SULBACTAM SODIUM
     Indication: Antibiotic therapy
     Dosage: UNK, 2X/DAY (EVERY 12 HOURS)
     Route: 041
     Dates: start: 20220219, end: 20220307
  2. DEXAMETHASONE SODIUM PHOSPHATE [Suspect]
     Active Substance: DEXAMETHASONE SODIUM PHOSPHATE
     Indication: Inflammation
     Dosage: 3 MG
     Route: 040
     Dates: start: 20220219, end: 20220219
  3. DEXAMETHASONE SODIUM PHOSPHATE [Suspect]
     Active Substance: DEXAMETHASONE SODIUM PHOSPHATE
     Dosage: 2 MG
     Route: 040
     Dates: start: 20220220, end: 20220220
  4. DEXAMETHASONE SODIUM PHOSPHATE [Suspect]
     Active Substance: DEXAMETHASONE SODIUM PHOSPHATE
     Dosage: 2 MG
     Route: 040
     Dates: start: 20220222, end: 20220222
  5. DEXAMETHASONE SODIUM PHOSPHATE [Suspect]
     Active Substance: DEXAMETHASONE SODIUM PHOSPHATE
     Dosage: 2 MG
     Route: 040
     Dates: start: 20220227, end: 20220227
  6. METHYLPREDNISOLONE SODIUM SUCCINATE [Suspect]
     Active Substance: METHYLPREDNISOLONE SODIUM SUCCINATE
     Indication: Inflammation
     Dosage: 20 MG ONCE
     Route: 041
     Dates: start: 20220224, end: 20220224
  7. METHYLPREDNISOLONE SODIUM SUCCINATE [Suspect]
     Active Substance: METHYLPREDNISOLONE SODIUM SUCCINATE
     Dosage: 20 MG ONCE
     Route: 040
     Dates: start: 20220303, end: 20220303
  8. METHYLPREDNISOLONE SODIUM SUCCINATE [Suspect]
     Active Substance: METHYLPREDNISOLONE SODIUM SUCCINATE
     Dosage: 40 MG ONCE
     Route: 040
     Dates: start: 20220306, end: 20220306
  9. DEXTROSE [Suspect]
     Active Substance: DEXTROSE
     Indication: Antibiotic therapy
     Dosage: 100 ML, 2X/DAY
     Route: 041
     Dates: start: 20220219, end: 20220307

REACTIONS (6)
  - Glucose urine present [Unknown]
  - Blood glucose increased [Unknown]
  - Blood uric acid increased [Unknown]
  - Arthralgia [Recovering/Resolving]
  - Gout [Unknown]
  - Swelling [Unknown]

NARRATIVE: CASE EVENT DATE: 20220219
